FAERS Safety Report 6635026-0 (Version None)
Quarter: 2010Q1

REPORT INFORMATION
  Report Type: 
  Country: None (occurrence: None)
  Receive Date: 20100311
  Receipt Date: 20100311
  Transmission Date: 20100710
  Serious: Yes (Hospitalization, Disabling)
  Sender: FDA-Public Use
  Company Number: None

PATIENT
  Age: 62 Year
  Sex: Female
  Weight: 65.7716 kg

DRUGS (2)
  1. FOSAMAX [Suspect]
     Indication: OSTEOPENIA
     Dosage: 1 WEEKLY PO
     Route: 048
     Dates: start: 20010614, end: 20070701
  2. ACTONEL [Suspect]
     Indication: OSTEOPENIA
     Dosage: 1 WEEKLY PO
     Route: 048
     Dates: start: 20070701, end: 20090401

REACTIONS (6)
  - ASTHENIA [None]
  - FALL [None]
  - FEMUR FRACTURE [None]
  - MUSCULAR WEAKNESS [None]
  - PATHOLOGICAL FRACTURE [None]
  - STRESS FRACTURE [None]
